FAERS Safety Report 23287060 (Version 1)
Quarter: 2023Q4

REPORT INFORMATION
  Report Type: Spontaneous
  Country: BR (occurrence: BR)
  Receive Date: 20231212
  Receipt Date: 20231212
  Transmission Date: 20240110
  Serious: Yes (Other)
  Sender: FDA-Public Use
  Company Number: BR-AMGEN-BRASP2023216776

PATIENT
  Age: 31 Year
  Sex: Male

DRUGS (5)
  1. FILGRASTIM [Suspect]
     Active Substance: FILGRASTIM
     Indication: Haematopoietic stem cell mobilisation
     Dosage: UNK
     Route: 065
  2. CARMUSTINE [Concomitant]
     Active Substance: CARMUSTINE
  3. ETOPOSIDE [Concomitant]
     Active Substance: ETOPOSIDE
  4. CYTARABINE [Concomitant]
     Active Substance: CYTARABINE
  5. MELPHALAN [Concomitant]
     Active Substance: MELPHALAN

REACTIONS (1)
  - Engraftment syndrome [Recovered/Resolved]
